FAERS Safety Report 4899941-0 (Version None)
Quarter: 2006Q1

REPORT INFORMATION
  Report Type: 
  Country: None (occurrence: None)
  Receive Date: 20060131
  Receipt Date: 20060120
  Transmission Date: 20060701
  Serious: Yes (Other)
  Sender: FDA-Public Use
  Company Number: 2006011120

PATIENT
  Age: 62 Year
  Sex: Male
  Weight: 81.6475 kg

DRUGS (4)
  1. ACCUPRIL [Suspect]
     Indication: HYPERTENSION
     Dosage: 20 MG (20 MG, 1 IN 1 D)
     Dates: start: 20020101
  2. QUINAPRIL [Suspect]
     Indication: HYPERTENSION
     Dosage: 20 MG (20 MG, 1 IN 1 D)
  3. LIBRIUM [Concomitant]
  4. TRAZODONE (TRAZODONE) [Concomitant]

REACTIONS (4)
  - COUGH [None]
  - DIZZINESS [None]
  - GLAUCOMA [None]
  - MACULAR DEGENERATION [None]
